FAERS Safety Report 6856528-8 (Version None)
Quarter: 2010Q3

REPORT INFORMATION
  Report Type: 
  Country: None (occurrence: None)
  Receive Date: 20100719
  Receipt Date: 20100521
  Transmission Date: 20110219
  Serious: Yes (Other)
  Sender: FDA-Public Use
  Company Number: CO-PFIZER INC-2010065623

PATIENT
  Age: 56 Year
  Sex: Female

DRUGS (2)
  1. CHAMPIX [Suspect]
     Indication: SMOKING CESSATION THERAPY
     Dosage: 1 MG, 2X/DAY
     Route: 048
     Dates: start: 20100507, end: 20100521
  2. GLUCOSAMINE [Concomitant]
     Indication: OSTEOARTHRITIS
     Dosage: 1500 MG, 1X/DAY

REACTIONS (1)
  - BLOOD PRESSURE DECREASED [None]
